FAERS Safety Report 12226921 (Version 2)
Quarter: 2016Q2

REPORT INFORMATION
  Report Type: Spontaneous
  Country: US (occurrence: US)
  Receive Date: 20160331
  Receipt Date: 20160419
  Transmission Date: 20160815
  Serious: Yes (Other)
  Sender: FDA-Public Use
  Company Number: US-MDT-ADR-2016-00253

PATIENT
  Age: 51 Year
  Sex: Female

DRUGS (46)
  1. ARMODAFINIL. [Suspect]
     Active Substance: ARMODAFINIL
     Dosage: 250 MG
     Route: 048
  2. AZELASTINE [Suspect]
     Active Substance: AZELASTINE
     Dosage: 137 MCG/SPRAY
     Route: 045
  3. LIDOCAINE 5% [Suspect]
     Active Substance: LIDOCAINE
     Route: 062
  4. VITAMIN B COMPLEX/VITAMIN C [Suspect]
     Active Substance: ASCORBIC ACID\VITAMIN B COMPLEX
     Route: 048
  5. LIORESAL [Suspect]
     Active Substance: BACLOFEN
     Indication: MUSCLE SPASTICITY
     Dosage: 1752.5 MCG/DAY
     Route: 037
  6. ASCORBIC ACID. [Suspect]
     Active Substance: ASCORBIC ACID
     Route: 048
  7. SODIUM CHLORIDE 0.65% [Suspect]
     Active Substance: SODIUM CHLORIDE
     Route: 045
  8. FUROSEMIDE. [Suspect]
     Active Substance: FUROSEMIDE
     Dosage: 80 MG
     Route: 048
  9. MOMETASONE FUROATE. [Suspect]
     Active Substance: MOMETASONE FUROATE
     Dosage: 50 MCG; 2 SPRAYS
     Route: 045
  10. OXYCODONE [Suspect]
     Active Substance: OXYCODONE
     Dosage: 5 MG/APAP 235 MG (PERCOCET) ONE TABLET 3X DAY
     Route: 048
  11. MINERAL OIL ENEMA [Suspect]
     Active Substance: MINERAL OIL
     Route: 054
  12. RIFAXIMIN [Suspect]
     Active Substance: RIFAXIMIN
     Dosage: 200 MG
     Route: 048
  13. DIPHENHYDRAMINE HCL [Suspect]
     Active Substance: DIPHENHYDRAMINE HYDROCHLORIDE
     Dosage: 12.5 MG/5 ML ELIXIR
     Route: 048
  14. SODIUM FLUORIDE 1.1% [Suspect]
     Active Substance: SODIUM FLUORIDE
     Route: 004
  15. ALBUTEROL. [Suspect]
     Active Substance: ALBUTEROL
     Dosage: 90 MCG
     Route: 055
  16. DULOXETINE HCL [Suspect]
     Active Substance: DULOXETINE HYDROCHLORIDE
     Dosage: 30 MG EC CAP
     Route: 048
  17. HYDROCORTISONE 0.5% [Suspect]
     Active Substance: HYDROCORTISONE
     Route: 061
  18. MUPIROCIN 2% [Suspect]
     Active Substance: MUPIROCIN
     Route: 061
  19. PHOSPHATES ENEMA [Suspect]
     Active Substance: SODIUM PHOSPHATE, DIBASIC\SODIUM PHOSPHATE, MONOBASIC
     Route: 054
  20. DIAZEPAM. [Suspect]
     Active Substance: DIAZEPAM
     Dosage: 10 MG
  21. QUETIAPINE FUMARATE. [Suspect]
     Active Substance: QUETIAPINE FUMARATE
     Dosage: 50 MG
     Route: 048
  22. RANITIDINE HCL [Suspect]
     Active Substance: RANITIDINE HYDROCHLORIDE
     Dosage: 150 MG
     Route: 048
  23. METHENAMINE HIPPURATE. [Suspect]
     Active Substance: METHENAMINE HIPPURATE
     Dosage: 1 GM
     Route: 048
  24. TEMAZEPAM. [Suspect]
     Active Substance: TEMAZEPAM
     Dosage: 15 MG
     Route: 048
  25. BIOTENE MOUTHWASH [Suspect]
     Active Substance: CETYLPYRIDINIUM CHLORIDE
     Route: 048
  26. IPRATROPIUM BR 0.03% [Suspect]
     Active Substance: IPRATROPIUM
     Dosage: ONE SPRAY IN EACH NOSTRIL, TWICE DAILY
     Route: 045
  27. AMITRIPTYLINE HCL [Suspect]
     Active Substance: AMITRIPTYLINE
     Dosage: 25 MG
     Route: 048
  28. DOCUSATE NA [Suspect]
     Active Substance: DOCUSATE
     Dosage: 50 MG;8.6 MG TAB
     Route: 048
  29. ENEMA NOS [Suspect]
     Active Substance: MINERAL OIL OR SODIUM PHOSPHATE, DIBASIC\SODIUM PHOSPHATE, MONOBASIC
     Route: 054
  30. MULTIVITAMIN [Suspect]
     Active Substance: VITAMINS
  31. PROCHLORPERAZINE. [Suspect]
     Active Substance: PROCHLORPERAZINE
     Dosage: 5 MG
     Route: 048
  32. ARIPIPRAZOLE. [Suspect]
     Active Substance: ARIPIPRAZOLE
     Dosage: 0.5 TABLET PER DAY
     Route: 048
  33. CEFUROXIME AXETIL. [Suspect]
     Active Substance: CEFUROXIME AXETIL
     Dosage: 500 MG
  34. SPIRONOLACTONE. [Suspect]
     Active Substance: SPIRONOLACTONE
     Dosage: 25 MG
     Route: 048
  35. SUMATRIPTAN SUCC [Suspect]
     Active Substance: SUMATRIPTAN SUCCINATE
     Route: 059
  36. VITAMIN D3 [Suspect]
     Active Substance: CHOLECALCIFEROL
     Dosage: 1000 UNIT
     Route: 048
  37. DICLOFENAC NA 1% [Suspect]
     Active Substance: DICLOFENAC SODIUM
     Route: 061
  38. ONDANSETRON HCL [Suspect]
     Active Substance: ONDANSETRON HYDROCHLORIDE
     Dosage: 4 MG
     Route: 048
  39. POLYVINYL ALC 1.4% [Suspect]
     Active Substance: POLYVINYL ALCOHOL
  40. NEILMED SINUS RINSE [Suspect]
     Active Substance: SODIUM BICARBONATE\SODIUM CHLORIDE
  41. TERBINAFINE HCL 1% [Suspect]
     Active Substance: TERBINAFINE HYDROCHLORIDE
     Route: 061
  42. TOLTERODINE TARTRATE. [Suspect]
     Active Substance: TOLTERODINE TARTRATE
     Dosage: 4 MG
  43. TRIAMCINOLONE ACETONIDE 0.1% [Suspect]
     Active Substance: TRIAMCINOLONE ACETONIDE
     Route: 061
  44. LIORESAL [Suspect]
     Active Substance: BACLOFEN
     Indication: MUSCLE SPASTICITY
     Dosage: 1630.8 MCG/DAY
     Route: 037
  45. CETIRIZINE HCL [Suspect]
     Active Substance: CETIRIZINE HYDROCHLORIDE
     Dosage: 10 MG
     Route: 048
  46. OMEPRAZOLE. [Suspect]
     Active Substance: OMEPRAZOLE
     Dosage: 20 MG, 2 CAPSULES TWICE A DAY
     Route: 048

REACTIONS (15)
  - Dysarthria [Unknown]
  - Respiratory acidosis [Unknown]
  - Adverse drug reaction [Unknown]
  - Condition aggravated [Unknown]
  - Muscle spasms [Unknown]
  - Progressive multiple sclerosis [Unknown]
  - Muscle spasticity [Unknown]
  - Pain [Unknown]
  - Hypoventilation [Unknown]
  - Hallucination, visual [Unknown]
  - Hypertonia [Unknown]
  - Somnolence [Unknown]
  - Hypoxia [Unknown]
  - Sleep apnoea syndrome [Unknown]
  - Confusional state [Unknown]

NARRATIVE: CASE EVENT DATE: 20160120
